FAERS Safety Report 14897859 (Version 2)
Quarter: 2018Q2

REPORT INFORMATION
  Report Type: Spontaneous
  Country: US (occurrence: US)
  Receive Date: 20180515
  Receipt Date: 20180517
  Transmission Date: 20180711
  Serious: No
  Sender: FDA-Public Use
  Company Number: US-SA-2017SA208438

PATIENT
  Sex: Female

DRUGS (3)
  1. INSULIN, REGULAR [Concomitant]
     Active Substance: INSULIN NOS
     Dosage: DOSE:60 UNIT(S)
     Route: 065
     Dates: start: 2017
  2. TOUJEO [Suspect]
     Active Substance: INSULIN GLARGINE
     Dosage: DOSE:45 UNIT(S)
     Route: 051
     Dates: start: 201704
  3. SOLOSTAR [Suspect]
     Active Substance: DEVICE
     Dates: start: 201704

REACTIONS (2)
  - Blood glucose increased [Not Recovered/Not Resolved]
  - Product use issue [Unknown]

NARRATIVE: CASE EVENT DATE: 2017
